FAERS Safety Report 18713377 (Version 2)
Quarter: 2022Q1

REPORT INFORMATION
  Report Type: Spontaneous
  Country: US (occurrence: US)
  Receive Date: 20210107
  Receipt Date: 20220316
  Transmission Date: 20220423
  Serious: Yes (Other)
  Sender: FDA-Public Use
  Company Number: US-GLAXOSMITHKLINE-US2021GSK002860

PATIENT
  Sex: Female

DRUGS (12)
  1. ZANTAC [Suspect]
     Active Substance: RANITIDINE HYDROCHLORIDE
     Indication: Hiatus hernia
     Dosage: UNK UNK, OCCASIONAL
     Route: 065
     Dates: start: 198001, end: 200801
  2. ZANTAC [Suspect]
     Active Substance: RANITIDINE HYDROCHLORIDE
     Indication: Peptic ulcer
  3. ZANTAC [Suspect]
     Active Substance: RANITIDINE HYDROCHLORIDE
     Indication: Hiatus hernia
     Dosage: UNK, OCCASIONAL
     Route: 065
     Dates: start: 198001, end: 200801
  4. ZANTAC [Suspect]
     Active Substance: RANITIDINE HYDROCHLORIDE
     Indication: Peptic ulcer
  5. RANITIDINE [Suspect]
     Active Substance: RANITIDINE
     Indication: Hiatus hernia
     Dosage: UNK UNK, OCCASIONAL
     Route: 065
     Dates: start: 198001, end: 200801
  6. RANITIDINE [Suspect]
     Active Substance: RANITIDINE
     Indication: Peptic ulcer
  7. RANITIDINE [Suspect]
     Active Substance: RANITIDINE
     Indication: Hiatus hernia
     Dosage: UNK, OCCASIONAL
     Route: 065
     Dates: start: 198001, end: 200801
  8. RANITIDINE [Suspect]
     Active Substance: RANITIDINE
     Indication: Peptic ulcer
  9. RANITIDINE [Suspect]
     Active Substance: RANITIDINE
     Indication: Hiatus hernia
     Dosage: UNK UNK, OCCASIONAL
     Route: 065
     Dates: start: 198001, end: 200801
  10. RANITIDINE [Suspect]
     Active Substance: RANITIDINE
     Indication: Peptic ulcer
  11. RANITIDINE [Suspect]
     Active Substance: RANITIDINE
     Indication: Hiatus hernia
     Dosage: UNK, OCCASIONAL
     Route: 065
     Dates: start: 198001, end: 200801
  12. RANITIDINE [Suspect]
     Active Substance: RANITIDINE
     Indication: Peptic ulcer

REACTIONS (1)
  - Breast cancer [Unknown]
